FAERS Safety Report 5872105-X (Version None)
Quarter: 2008Q3

REPORT INFORMATION
  Report Type: 
  Country: None (occurrence: None)
  Receive Date: 20080905
  Receipt Date: 20080826
  Transmission Date: 20090109
  Serious: Yes (Hospitalization)
  Sender: FDA-Public Use
  Company Number: B0534448A

PATIENT
  Age: 48 Year
  Sex: Male

DRUGS (6)
  1. EPIVIR [Suspect]
     Indication: HIV INFECTION
     Dosage: 1UNIT PER DAY
     Route: 048
  2. NORVIR [Suspect]
     Indication: HIV INFECTION
     Dosage: 1UNIT TWICE PER DAY
     Route: 048
  3. PREZISTA [Suspect]
     Indication: HIV INFECTION
     Dosage: 2UNIT TWICE PER DAY
     Route: 048
  4. ETRAVIRINE [Suspect]
     Indication: HIV INFECTION
     Dosage: 2UNIT TWICE PER DAY
     Route: 048
  5. VIDEX [Suspect]
     Indication: HIV INFECTION
     Dosage: 1UNIT PER DAY
     Route: 048
  6. RALTEGRAVIR [Suspect]
     Indication: HIV INFECTION
     Dosage: 1UNIT TWICE PER DAY
     Route: 048

REACTIONS (9)
  - ARTERIAL DISORDER [None]
  - ARTERIOSCLEROSIS [None]
  - CHEST DISCOMFORT [None]
  - CORONARY ARTERY OCCLUSION [None]
  - HYPERHIDROSIS [None]
  - MITRAL VALVE INCOMPETENCE [None]
  - MYOCARDIAL INFARCTION [None]
  - PAIN [None]
  - VENTRICULAR TACHYCARDIA [None]
